FAERS Safety Report 22285471 (Version 1)
Quarter: 2023Q2

REPORT INFORMATION
  Report Type: Spontaneous
  Country: US (occurrence: US)
  Receive Date: 20230504
  Receipt Date: 20230504
  Transmission Date: 20230722
  Serious: No
  Sender: FDA-Public Use
  Company Number: US-SUNOVION-2023SUN000591AA

PATIENT
  Age: 68 Year
  Sex: Male

DRUGS (1)
  1. LATUDA [Suspect]
     Active Substance: LURASIDONE HYDROCHLORIDE
     Dosage: 40MG QD (40MG BY CUTTING A LATUDA 80MG IN HALF)
     Route: 048

REACTIONS (2)
  - Gastric disorder [Unknown]
  - Wrong technique in product usage process [Unknown]
